FAERS Safety Report 4860790-0 (Version None)
Quarter: 2005Q4

REPORT INFORMATION
  Report Type: 
  Country: None (occurrence: None)
  Receive Date: 20051220
  Receipt Date: 20051208
  Transmission Date: 20060501
  Serious: Yes (Hospitalization)
  Sender: FDA-Public Use
  Company Number: FR-RB-2434-2005

PATIENT
  Age: 23 Month
  Sex: Male
  Weight: 10 kg

DRUGS (1)
  1. BUPRENORPHINE HCL [Suspect]
     Indication: DRUG USE FOR UNKNOWN INDICATION
     Dosage: DOSAGE UNKNOWN
     Route: 048
     Dates: start: 20050101, end: 20050626

REACTIONS (6)
  - ACCIDENTAL OVERDOSE [None]
  - BINOCULAR EYE MOVEMENT DISORDER [None]
  - CONVULSION [None]
  - HYPOTONIA [None]
  - MIOSIS [None]
  - VOMITING [None]
